FAERS Safety Report 10721799 (Version 2)
Quarter: 2015Q1

REPORT INFORMATION
  Report Type: Report from Study
  Country: DE (occurrence: DE)
  Receive Date: 20150119
  Receipt Date: 20150206
  Transmission Date: 20150721
  Serious: Yes (Hospitalization)
  Sender: FDA-Public Use
  Company Number: DE-ABBVIE-14K-062-1315395-00

PATIENT
  Age: 76 Year
  Sex: Male
  Weight: 78 kg

DRUGS (7)
  1. METFORMIN HEUMANN [Concomitant]
     Indication: PRODUCT USED FOR UNKNOWN INDICATION
     Dosage: FREQUENCY 1-0-1
     Dates: start: 2000
  2. HUMIRA [Suspect]
     Active Substance: ADALIMUMAB
     Indication: PSORIASIS
     Route: 058
     Dates: start: 20140213, end: 20141118
  3. METHOTREXATE [Concomitant]
     Active Substance: METHOTREXATE
     Indication: PRODUCT USED FOR UNKNOWN INDICATION
     Dates: start: 201309, end: 201406
  4. VOTUM [Concomitant]
     Active Substance: OLMESARTAN MEDOXOMIL
     Indication: PRODUCT USED FOR UNKNOWN INDICATION
     Dosage: FREQUENCY 1-0-0
     Dates: start: 2014
  5. ALLOPURINOL. [Concomitant]
     Active Substance: ALLOPURINOL
     Indication: PRODUCT USED FOR UNKNOWN INDICATION
     Dosage: 1A PHARMA, FREQUENCY 1-0-0
  6. NOVAMINSULFON [Concomitant]
     Active Substance: METAMIZOLE
     Indication: PRODUCT USED FOR UNKNOWN INDICATION
     Dosage: RATIOPHARM, FREQUENCY 1-1-1-1
  7. JANUVIA [Concomitant]
     Active Substance: SITAGLIPTIN PHOSPHATE
     Indication: PRODUCT USED FOR UNKNOWN INDICATION
     Dosage: FREQUENCY 1-0-1
     Dates: start: 2000

REACTIONS (38)
  - Diarrhoea [Recovered/Resolved]
  - Chills [Recovering/Resolving]
  - Hypokalaemia [Unknown]
  - Electrolyte depletion [Unknown]
  - General physical health deterioration [Unknown]
  - Activated partial thromboplastin time shortened [Unknown]
  - Colitis ischaemic [Recovered/Resolved]
  - Blood chloride decreased [Unknown]
  - Blood glucose increased [Unknown]
  - Gamma-glutamyltransferase increased [Unknown]
  - Interstitial lung disease [Unknown]
  - Abdominal pain [Recovering/Resolving]
  - Oedema peripheral [Unknown]
  - Intestinal ischaemia [Unknown]
  - Pyrexia [Unknown]
  - Reactive gastropathy [Unknown]
  - Erythema [Unknown]
  - C-reactive protein increased [Unknown]
  - Rectal adenoma [Unknown]
  - Colitis [Unknown]
  - Pyrexia [Recovered/Resolved]
  - Red blood cell count decreased [Unknown]
  - Urinary tract infection enterococcal [Unknown]
  - Colitis microscopic [Unknown]
  - Urinary tract infection [Recovered/Resolved]
  - Renal cyst [Unknown]
  - Aortic arteriosclerosis [Unknown]
  - Platelet count decreased [Unknown]
  - Emphysema [Unknown]
  - Escherichia urinary tract infection [Unknown]
  - Sinus tachycardia [Unknown]
  - Mesenteric arteriosclerosis [Unknown]
  - Vertigo [Recovering/Resolving]
  - Rectal polyp [Recovered/Resolved]
  - Inflammation [Unknown]
  - Splenomegaly [Unknown]
  - Psoriatic arthropathy [Unknown]
  - Blood bilirubin increased [Unknown]

NARRATIVE: CASE EVENT DATE: 2014
